FAERS Safety Report 9664446 (Version 2)
Quarter: 2013Q4

REPORT INFORMATION
  Report Type: Spontaneous
  Country: US (occurrence: US)
  Receive Date: 20131101
  Receipt Date: 20131101
  Transmission Date: 20140711
  Serious: Yes (Life-Threatening)
  Sender: FDA-Public Use
  Company Number: US-ASTRAZENECA-2012SE85121

PATIENT
  Age: 61 Year
  Sex: Female

DRUGS (2)
  1. LIDOCAINE [Suspect]
     Indication: NERVE BLOCK
     Route: 053
  2. MEPIVACAINE [Suspect]
     Indication: NERVE BLOCK
     Route: 053

REACTIONS (2)
  - Respiratory arrest [Recovered/Resolved]
  - Overdose [Recovered/Resolved]
